FAERS Safety Report 7391036 (Version 4)
Quarter: 2015Q3

REPORT INFORMATION
  Report Type: Report from Study
  Country: US (occurrence: US)
  Receive Date: 20100518
  Receipt Date: 20150715
  Transmission Date: 20151125
  Serious: Yes (Hospitalization)
  Sender: FDA-Public Use
  Company Number: US-BIOGENIDEC-2010BI012691

PATIENT
  Age: 19 Year
  Sex: Male

DRUGS (1)
  1. AVONEX [Suspect]
     Active Substance: INTERFERON BETA-1A
     Indication: MULTIPLE SCLEROSIS
     Route: 030
     Dates: start: 20100302, end: 20100412

REACTIONS (7)
  - Cerebral cyst [Not Recovered/Not Resolved]
  - Seizure [Recovered/Resolved]
  - Status epilepticus [Unknown]
  - Multiple sclerosis [Unknown]
  - Dyspnoea [Recovered/Resolved]
  - Respiratory arrest [Recovered/Resolved]
  - Nuclear magnetic resonance imaging brain abnormal [Unknown]

NARRATIVE: CASE EVENT DATE: 2010
